FAERS Safety Report 9442805 (Version 1)
Quarter: 2013Q3

REPORT INFORMATION
  Report Type: Spontaneous
  Country: US (occurrence: US)
  Receive Date: 20130806
  Receipt Date: 20130806
  Transmission Date: 20140515
  Serious: No
  Sender: FDA-Public Use
  Company Number: US-ABBOTT-13P-163-1060542-00

PATIENT
  Sex: Female
  Weight: 62.65 kg

DRUGS (5)
  1. DEPAKOTE ER [Suspect]
     Indication: MANIA
     Dates: start: 1992, end: 2012
  2. DEPAKOTE ER [Suspect]
     Dosage: ONCE EVERY THIRD NIGHT
     Dates: start: 2012
  3. CYMBALTA [Concomitant]
     Indication: MANIA
     Dosage: ONCE EVERY THIRD NIGHT
  4. ABILIFY [Concomitant]
     Indication: MANIA
     Dosage: ONCE EVERY THIRD NIGHT
  5. LEVOTHYROXINE [Concomitant]
     Indication: HYPOTHYROIDISM

REACTIONS (3)
  - Feeling hot [Not Recovered/Not Resolved]
  - Hyperhidrosis [Not Recovered/Not Resolved]
  - Inappropriate schedule of drug administration [Unknown]
